FAERS Safety Report 7937959-1 (Version None)
Quarter: 2011Q4

REPORT INFORMATION
  Report Type: 
  Country: None (occurrence: None)
  Receive Date: 20111123
  Receipt Date: 20111114
  Transmission Date: 20120403
  Serious: Yes (Other)
  Sender: FDA-Public Use
  Company Number: NZ-PFIZER INC-2011285824

PATIENT
  Age: 16 Year
  Sex: Female

DRUGS (3)
  1. ACETAMINOPHEN [Suspect]
     Indication: PROCEDURAL PAIN
  2. TRAMADOL HCL [Suspect]
     Indication: PROCEDURAL PAIN
  3. MORPHINE SULFATE [Suspect]
     Indication: PROCEDURAL PAIN

REACTIONS (1)
  - ILEUS [None]
